FAERS Safety Report 5494644-6 (Version None)
Quarter: 2007Q4

REPORT INFORMATION
  Report Type: 
  Country: None (occurrence: None)
  Receive Date: 20071024
  Receipt Date: 20071012
  Transmission Date: 20080405
  Serious: Yes (Other)
  Sender: FDA-Public Use
  Company Number: HQWYE684404MAY04

PATIENT
  Sex: Female

DRUGS (3)
  1. PREMPRO [Suspect]
     Indication: HORMONE REPLACEMENT THERAPY
     Dosage: UNSPECIFIED DAILY
     Route: 048
     Dates: start: 19961204, end: 20020509
  2. PROVERA [Suspect]
     Indication: HORMONE REPLACEMENT THERAPY
     Dosage: UNSPECIFIED DAILY
     Route: 048
     Dates: start: 19930208, end: 19960101
  3. PREMARIN [Suspect]
     Indication: HORMONE REPLACEMENT THERAPY
     Dosage: UNSPECIFIED DAILY
     Route: 048
     Dates: start: 19930208, end: 19960101

REACTIONS (2)
  - BREAST CANCER METASTATIC [None]
  - MYOCARDIAL INFARCTION [None]
